FAERS Safety Report 4541702-6 (Version None)
Quarter: 2004Q4

REPORT INFORMATION
  Report Type: 
  Country: None (occurrence: None)
  Receive Date: 20041227
  Receipt Date: 20041213
  Transmission Date: 20050328
  Serious: Yes (Hospitalization)
  Sender: FDA-Public Use
  Company Number: MK200412-0297-1

PATIENT
  Age: 68 Year
  Sex: Female

DRUGS (3)
  1. TOFRANIL [Suspect]
     Dates: start: 20040701
  2. BUP-4 [Suspect]
     Dates: start: 20040701
  3. NORVASC [Concomitant]

REACTIONS (7)
  - ALANINE AMINOTRANSFERASE INCREASED [None]
  - ASPARTATE AMINOTRANSFERASE INCREASED [None]
  - BLOOD ALKALINE PHOSPHATASE INCREASED [None]
  - GAMMA-GLUTAMYLTRANSFERASE INCREASED [None]
  - LIVER DISORDER [None]
  - NASOPHARYNGITIS [None]
  - PYREXIA [None]
